FAERS Safety Report 6373839-3 (Version None)
Quarter: 2009Q3

REPORT INFORMATION
  Report Type: 
  Country: None (occurrence: None)
  Receive Date: 20090924
  Receipt Date: 20090623
  Transmission Date: 20100115
  Serious: No
  Sender: FDA-Public Use
  Company Number: US-ASTRAZENECA-2009UW14206

PATIENT
  Age: 57 Year
  Sex: Male

DRUGS (3)
  1. SEROQUEL [Suspect]
     Indication: SCHIZOPHRENIA, PARANOID TYPE
     Dosage: TAPERING DOSES 400 MG, 300 MG, 200 MG, 100 MG
     Route: 048
     Dates: start: 20070101, end: 20090521
  2. PROLIXIN DECANOATE [Concomitant]
  3. KLONOPIN [Concomitant]

REACTIONS (3)
  - ANGER [None]
  - BLOOD GLUCOSE FLUCTUATION [None]
  - SOMNOLENCE [None]
